FAERS Safety Report 18807689 (Version 2)
Quarter: 2021Q1

REPORT INFORMATION
  Report Type: Spontaneous
  Country: DE (occurrence: DE)
  Receive Date: 20210129
  Receipt Date: 20210205
  Transmission Date: 20210419
  Serious: Yes (Other)
  Sender: FDA-Public Use
  Company Number: DE-PFIZER INC-2021065382

PATIENT
  Age: 20 Year
  Sex: Female

DRUGS (16)
  1. RITUXIMAB. [Suspect]
     Active Substance: RITUXIMAB
     Indication: ENCEPHALITIS AUTOIMMUNE
     Dosage: 1000 MG, EVERY 6 MONTHS (AFTER DISEASE ONSET)
     Dates: start: 2017
  2. DARATUMUMAB [Suspect]
     Active Substance: DARATUMUMAB
     Indication: ENCEPHALITIS AUTOIMMUNE
     Dosage: 800 MG, CYCLIC (16MG/KG) (INTERVAL WAS EXTEDED TO BIWEEKLY)
     Route: 042
  3. RITUXIMAB. [Suspect]
     Active Substance: RITUXIMAB
     Dosage: FIRST CYCLE, AFTER PLASMAPHERESIS COMBINED WITH HIGH?DOSE CORTICOSTEROIDS
  4. IMMUNOGLOBULIN I.V [Suspect]
     Active Substance: HUMAN IMMUNOGLOBULIN G
     Indication: IMMUNOMODULATORY THERAPY
     Dosage: 1?2 G/KGBW/D FOR 3 DAYS, GIVEN FOUR TIMES AFTER INITIAL ADMINISTRATION
  5. RITUXIMAB. [Suspect]
     Active Substance: RITUXIMAB
     Dosage: SECOND COURSE, AFTER PLASMAPHERESIS COMBINED WITH HIGH?DOSE CORTICOSTEROIDS
  6. BORTEZOMIB. [Suspect]
     Active Substance: BORTEZOMIB
     Dosage: TWELVE MONTHS AFTER ONSET: RECEIVED ANOTHER THREE CYCLES (THIRD CYCLE)
  7. BORTEZOMIB. [Suspect]
     Active Substance: BORTEZOMIB
     Indication: ENCEPHALITIS AUTOIMMUNE
     Dosage: TWELVE MONTHS AFTER ONSET: RECEIVED ANOTHER THREE CYCLES (FIRST CYCLE)
     Dates: start: 2017
  8. BORTEZOMIB. [Suspect]
     Active Substance: BORTEZOMIB
     Dosage: 1.3 MG/M2 ON DAY 1, 4, 8, AND 11 FOR EACH CYCLE (FIRST CYCLE)
  9. CLEMASTINE [Concomitant]
     Active Substance: CLEMASTINE
     Indication: PREMEDICATION
     Dosage: 2 MG/5ML
  10. BORTEZOMIB. [Suspect]
     Active Substance: BORTEZOMIB
     Dosage: 1.3 MG/M2 ON DAY 1, 4, 8, AND 11 FOR EACH CYCLE (SECOND CYCLE)
  11. PREDNISOLONE. [Concomitant]
     Active Substance: PREDNISOLONE
     Indication: PREMEDICATION
     Dosage: 100 MG/5ML
     Dates: start: 2017
  12. BORTEZOMIB. [Suspect]
     Active Substance: BORTEZOMIB
     Dosage: TWELVE MONTHS AFTER ONSET: RECEIVED ANOTHER THREE CYCLES (SECOND CYCLE)
  13. CYCLOPHOSPHAMID [Suspect]
     Active Substance: CYCLOPHOSPHAMIDE
     Indication: IMMUNOMODULATORY THERAPY
     Dosage: WITH IVIG
  14. DARATUMUMAB [Suspect]
     Active Substance: DARATUMUMAB
     Dosage: 800 MG, CYCLIC (16MG/KG) (CYCLE 1?8, WEEKLY)
     Route: 042
  15. PARACETAMOL [Concomitant]
     Active Substance: ACETAMINOPHEN
     Indication: PREMEDICATION
     Dosage: 1,000 MG/100ML
  16. BORTEZOMIB. [Suspect]
     Active Substance: BORTEZOMIB
     Dosage: 1.3 MG/M2 ON DAY 1, 4, 8, AND 11 FOR EACH CYCLE (THIRD CYCLE)

REACTIONS (5)
  - Pneumonia cytomegaloviral [Unknown]
  - Urinary tract infection [Unknown]
  - Drug ineffective for unapproved indication [Unknown]
  - Septic shock [Unknown]
  - Off label use [Unknown]
